FAERS Safety Report 14559473 (Version 2)
Quarter: 2018Q2

REPORT INFORMATION
  Report Type: Spontaneous
  Country: US (occurrence: US)
  Receive Date: 20180221
  Receipt Date: 20180517
  Transmission Date: 20180711
  Serious: Yes (Hospitalization)
  Sender: FDA-Public Use
  Company Number: US-ELI_LILLY_AND_COMPANY-US201802007329

PATIENT
  Age: 45 Year
  Sex: Male

DRUGS (1)
  1. TALTZ [Suspect]
     Active Substance: IXEKIZUMAB
     Indication: PSORIASIS
     Dosage: 80 MG, OTHER (EVERY OTHER WEEK)
     Route: 058
     Dates: start: 20170727, end: 20171009

REACTIONS (4)
  - Necrotising fasciitis [Recovered/Resolved]
  - Asthenia [Unknown]
  - Bacterial infection [Unknown]
  - Influenza like illness [Unknown]

NARRATIVE: CASE EVENT DATE: 20171005
